FAERS Safety Report 24044666 (Version 4)
Quarter: 2024Q3

REPORT INFORMATION
  Report Type: Spontaneous
  Country: US (occurrence: US)
  Receive Date: 20240703
  Receipt Date: 20240919
  Transmission Date: 20241016
  Serious: No
  Sender: BLUEPRINT MEDICINES
  Company Number: US-Blueprint Medicines Corporation-4033

PATIENT
  Age: 60 Year
  Sex: Male

DRUGS (2)
  1. AYVAKIT [Suspect]
     Active Substance: AVAPRITINIB
     Indication: Systemic mastocytosis
     Route: 065
     Dates: start: 20240608
  2. AYVAKIT [Suspect]
     Active Substance: AVAPRITINIB
     Route: 065
     Dates: start: 20240608

REACTIONS (13)
  - Sleep disorder [Unknown]
  - Flatulence [Unknown]
  - Bowel movement irregularity [Unknown]
  - Dyspepsia [Unknown]
  - Fatigue [Unknown]
  - Headache [Unknown]
  - Dysgeusia [Unknown]
  - Abdominal discomfort [Recovering/Resolving]
  - Faeces soft [Unknown]
  - Abdominal pain upper [Unknown]
  - Memory impairment [Unknown]
  - Feeling abnormal [Unknown]
  - Extra dose administered [Unknown]

NARRATIVE: CASE EVENT DATE: 20240906
